FAERS Safety Report 6375640-3 (Version None)
Quarter: 2009Q3

REPORT INFORMATION
  Report Type: 
  Country: None (occurrence: None)
  Receive Date: 20090918
  Receipt Date: 20090918
  Transmission Date: 20100115
  Serious: Yes (Other)
  Sender: FDA-Public Use
  Company Number: None

PATIENT
  Age: 84 Year
  Sex: Female
  Weight: 58.9676 kg

DRUGS (2)
  1. SUNITINEB 25 MG PFIZER [Suspect]
     Indication: BLADDER CANCER
     Dosage: 37.5 QD PO
     Route: 048
     Dates: start: 20090820, end: 20090908
  2. SUNITINEB 12.5 MG PFIZER [Suspect]

REACTIONS (1)
  - PALMAR-PLANTAR ERYTHRODYSAESTHESIA SYNDROME [None]
